FAERS Safety Report 7724095-2 (Version None)
Quarter: 2011Q3

REPORT INFORMATION
  Report Type: 
  Country: None (occurrence: None)
  Receive Date: 20110901
  Receipt Date: 20090119
  Transmission Date: 20111222
  Serious: Yes (Other)
  Sender: FDA-Public Use
  Company Number: PHHY2009DE01306

PATIENT
  Sex: Male
  Weight: 66 kg

DRUGS (1)
  1. ZOMETA [Suspect]
     Indication: BONE DISORDER
     Dosage: 4 MG, EVERY FOUR WEEK
     Route: 042
     Dates: start: 20080307, end: 20080707

REACTIONS (5)
  - NEOPLASM MALIGNANT [None]
  - ASCITES [None]
  - PNEUMOTHORAX [None]
  - PLEURAL EFFUSION [None]
  - VENOUS THROMBOSIS [None]
